FAERS Safety Report 17174504 (Version 1)
Quarter: 2019Q4

REPORT INFORMATION
  Report Type: Report from Study
  Country: US (occurrence: US)
  Receive Date: 20191219
  Receipt Date: 20191219
  Transmission Date: 20200122
  Serious: Yes (Other)
  Sender: FDA-Public Use
  Company Number: US-TAKEDA-2019TUS049556

PATIENT
  Sex: Male

DRUGS (5)
  1. EFFEXOR [Concomitant]
     Active Substance: VENLAFAXINE HYDROCHLORIDE
     Dosage: UNK
  2. PONATINIB [Suspect]
     Active Substance: PONATINIB
     Indication: ACUTE LYMPHOCYTIC LEUKAEMIA
     Dosage: 15 MILLIGRAM, QD
     Route: 048
     Dates: start: 20190724
  3. BUDESONIDE. [Concomitant]
     Active Substance: BUDESONIDE
     Dosage: UNK
  4. PANTOPRAZOLE SODIUM. [Concomitant]
     Active Substance: PANTOPRAZOLE SODIUM
     Dosage: UNK
  5. METFORMIN HCL [Concomitant]
     Active Substance: METFORMIN HYDROCHLORIDE
     Dosage: UNK

REACTIONS (13)
  - Liver function test abnormal [Unknown]
  - Arthralgia [Unknown]
  - Headache [Unknown]
  - Graft versus host disease in skin [Unknown]
  - Hypertension [Unknown]
  - Product dose omission [Unknown]
  - Retinal haemorrhage [Unknown]
  - Blood glucose increased [Unknown]
  - Graft versus host disease in gastrointestinal tract [Unknown]
  - Rash [Unknown]
  - Myalgia [Unknown]
  - Vitamin D decreased [Unknown]
  - Constipation [Unknown]
